FAERS Safety Report 5466047-1 (Version None)
Quarter: 2007Q3

REPORT INFORMATION
  Report Type: 
  Country: None (occurrence: None)
  Receive Date: 20070924
  Receipt Date: 20070920
  Transmission Date: 20080115
  Serious: Yes (Death, Hospitalization)
  Sender: FDA-Public Use
  Company Number: ES-GENENTECH-239820

PATIENT
  Sex: Female
  Weight: 68 kg

DRUGS (5)
  1. RITUXAN [Suspect]
     Indication: NON-HODGKIN'S LYMPHOMA
     Dosage: 375 MG/M2, UNK
     Route: 042
     Dates: start: 20070222, end: 20070314
  2. CYCLOPHOSPHAMIDE [Concomitant]
     Indication: LYMPHOCYTOSIS
  3. DOXORUBICIN HCL [Concomitant]
     Indication: LYMPHOCYTOSIS
  4. VINCRISTINE [Concomitant]
     Indication: LYMPHOCYTOSIS
  5. PREDNISONE [Concomitant]
     Indication: LYMPHOCYTOSIS

REACTIONS (4)
  - ABDOMINAL PAIN [None]
  - DYSPNOEA [None]
  - MYALGIA [None]
  - RESPIRATORY FAILURE [None]
